FAERS Safety Report 14309300 (Version 1)
Quarter: 2017Q4

REPORT INFORMATION
  Report Type: Spontaneous
  Country: US (occurrence: US)
  Receive Date: 20171220
  Receipt Date: 20171220
  Transmission Date: 20180321
  Serious: Yes (Hospitalization, Other)
  Sender: FDA-Public Use
  Company Number: US-ZYDUS-018359

PATIENT
  Age: 43 Year
  Sex: Male

DRUGS (1)
  1. DEXTROAMPHETAMINE. [Suspect]
     Active Substance: DEXTROAMPHETAMINE
     Indication: PRODUCT USED FOR UNKNOWN INDICATION
     Route: 065

REACTIONS (8)
  - Dyspnoea [Unknown]
  - Jugular vein distension [Unknown]
  - Ventricular dysfunction [Unknown]
  - Pulmonary hypertension [Unknown]
  - Syncope [Unknown]
  - Dilatation ventricular [Unknown]
  - Heart sounds abnormal [Unknown]
  - Polycythaemia [Unknown]
